FAERS Safety Report 15340021 (Version 1)
Quarter: 2018Q3

REPORT INFORMATION
  Report Type: Spontaneous
  Country: CH (occurrence: CH)
  Receive Date: 20180831
  Receipt Date: 20180831
  Transmission Date: 20181010
  Serious: Yes (Other)
  Sender: FDA-Public Use
  Company Number: CH-LPDUSPRD-20181559

PATIENT
  Age: 43 Year
  Sex: Female
  Weight: 65 kg

DRUGS (1)
  1. FERINJECT [Suspect]
     Active Substance: FERRIC CARBOXYMALTOSE
     Dosage: 1000 MG
     Route: 041
     Dates: start: 20180802, end: 20180802

REACTIONS (7)
  - Dyspnoea [Unknown]
  - Blood pressure decreased [Unknown]
  - Chest discomfort [Unknown]
  - Anxiety [Unknown]
  - Panic attack [Unknown]
  - Heart rate increased [Unknown]
  - Hyperventilation [Recovered/Resolved]

NARRATIVE: CASE EVENT DATE: 201808
